FAERS Safety Report 5033498-9 (Version None)
Quarter: 2006Q2

REPORT INFORMATION
  Report Type: 
  Country: None (occurrence: None)
  Receive Date: 20060518
  Receipt Date: 20060314
  Transmission Date: 20061013
  Serious: Yes (Other)
  Sender: FDA-Public Use
  Company Number: 2006037026

PATIENT
  Age: 29 Year
  Sex: Female
  Weight: 72.5755 kg

DRUGS (2)
  1. DEPO-PROVERA [Suspect]
     Indication: CONTRACEPTION
     Dosage: 150 MG (150 MG, FIRST INJECTION, EVERY 3 MONTHS), INTRAMUSCULAR- SEE IMAGE
     Route: 030
     Dates: start: 20050517, end: 20050517
  2. DEPO-PROVERA [Suspect]
     Indication: CONTRACEPTION
     Dosage: 150 MG (150 MG, FIRST INJECTION, EVERY 3 MONTHS), INTRAMUSCULAR- SEE IMAGE
     Route: 030
     Dates: start: 20060117, end: 20060117

REACTIONS (1)
  - UNINTENDED PREGNANCY [None]
